FAERS Safety Report 9404062 (Version 1)
Quarter: 2013Q3

REPORT INFORMATION
  Report Type: Report from Study
  Country: DE (occurrence: DE)
  Receive Date: 20130717
  Receipt Date: 20130717
  Transmission Date: 20140515
  Serious: Yes (Hospitalization)
  Sender: FDA-Public Use
  Company Number: DE-ROCHE-1249377

PATIENT
  Age: 73 Year
  Sex: Male
  Weight: 94 kg

DRUGS (11)
  1. BEVACIZUMAB [Suspect]
     Indication: COLORECTAL CANCER METASTATIC
     Route: 042
     Dates: start: 20130409
  2. BEVACIZUMAB [Suspect]
     Dosage: CYCLE 5 RESUMED
     Route: 042
     Dates: start: 20130618
  3. 5-FU [Suspect]
     Indication: COLORECTAL CANCER METASTATIC
     Route: 042
     Dates: start: 20130409
  4. 5-FU [Suspect]
     Dosage: CYCLE 5, THERAPY RESUMED
     Route: 042
     Dates: start: 20130618
  5. FOLINIC ACID [Suspect]
     Indication: COLORECTAL CANCER METASTATIC
     Route: 042
     Dates: start: 20130409
  6. FOLINIC ACID [Suspect]
     Dosage: CYCLE 5, THERAPY RESUMED
     Route: 042
     Dates: start: 20130618
  7. OXALIPLATIN [Suspect]
     Indication: COLORECTAL CANCER METASTATIC
     Route: 042
     Dates: start: 20130409
  8. OXALIPLATIN [Suspect]
     Dosage: CYCLE 5, THERAPY RESUMED
     Route: 042
     Dates: start: 20130618
  9. LISINOPRIL [Concomitant]
     Indication: HYPERTENSION
     Route: 048
  10. METFORMIN [Concomitant]
     Indication: DIABETES MELLITUS
     Route: 048
  11. EUTHYROX [Concomitant]
     Indication: HYPOTHYROIDISM
     Route: 048

REACTIONS (1)
  - Aphasia [Recovered/Resolved]
